FAERS Safety Report 6577338-5 (Version None)
Quarter: 2010Q1

REPORT INFORMATION
  Report Type: 
  Country: None (occurrence: None)
  Receive Date: 20100210
  Receipt Date: 20100205
  Transmission Date: 20100710
  Serious: Yes (Death, Hospitalization)
  Sender: FDA-Public Use
  Company Number: US-CELGENEUS-163-21880-09122105

PATIENT
  Sex: Male
  Weight: 92.162 kg

DRUGS (11)
  1. REVLIMID [Suspect]
     Route: 048
     Dates: start: 20091203, end: 20091223
  2. REVLIMID [Suspect]
     Route: 048
     Dates: start: 20091105
  3. GEMCITABINE [Suspect]
     Route: 051
     Dates: start: 20091203, end: 20091217
  4. GEMCITABINE [Suspect]
     Route: 051
     Dates: start: 20091105
  5. PLATELETS [Concomitant]
     Indication: DRUG USE FOR UNKNOWN INDICATION
     Dosage: 2 UNITS
     Route: 051
     Dates: start: 20091201, end: 20091201
  6. PLATELETS [Concomitant]
     Dosage: 1UNIT
     Route: 051
     Dates: start: 20091201, end: 20091201
  7. CREON [Concomitant]
     Indication: DRUG USE FOR UNKNOWN INDICATION
     Dosage: 20
     Route: 048
     Dates: start: 20080801
  8. AMITIZA [Concomitant]
     Indication: DRUG USE FOR UNKNOWN INDICATION
     Route: 048
     Dates: start: 20091001
  9. M.V.I. [Concomitant]
     Indication: DRUG USE FOR UNKNOWN INDICATION
     Route: 048
     Dates: start: 20080901
  10. HYDROCODONE [Concomitant]
     Indication: DRUG USE FOR UNKNOWN INDICATION
     Route: 048
     Dates: start: 20091103
  11. ASPIRIN [Concomitant]
     Indication: DRUG USE FOR UNKNOWN INDICATION
     Route: 048
     Dates: start: 20091105

REACTIONS (3)
  - ACUTE RESPIRATORY FAILURE [None]
  - HYPERGLYCAEMIA [None]
  - THROMBOCYTOPENIA [None]
